FAERS Safety Report 18342836 (Version 1)
Quarter: 2020Q4

REPORT INFORMATION
  Report Type: Spontaneous
  Country: US (occurrence: US)
  Receive Date: 20201003
  Receipt Date: 20201003
  Transmission Date: 20210113
  Serious: Yes (Other)
  Sender: FDA-Public Use
  Company Number: None

PATIENT
  Age: 63 Year
  Sex: Male
  Weight: 195.7 kg

DRUGS (9)
  1. PANTOPRAZOLE 40 MG IV DAILY [Concomitant]
     Dates: start: 20201001
  2. REMDESIVIR POWDER FOR RECONSTITUTION [Suspect]
     Active Substance: REMDESIVIR
     Indication: SARS-COV-2 TEST POSITIVE
     Route: 042
     Dates: start: 20200930, end: 20201003
  3. INSULIN REGULAR 100 UNIT/100 ML NS DRIP [Concomitant]
     Dates: start: 20201001
  4. LEVOFLOXACIN 750 MG/150 ML DAILY [Concomitant]
     Dates: start: 20200930
  5. CISATRACURIUM 100 MG/100 ML NS DRIP [Concomitant]
     Dates: start: 20201001
  6. DEXAMETHASONE INJ (6 MG DAILY) [Concomitant]
     Dates: start: 20200930
  7. FENTANYL 1000 MCG/100 ML NS DRIP [Concomitant]
     Dates: start: 20201002
  8. MIDAZOLAM 50 MG/50 ML NS DRIP [Concomitant]
     Dates: start: 20201001
  9. HEPARIN 25000/250 ML D5W DRIP [Concomitant]
     Dates: start: 20200930

REACTIONS (3)
  - Heart rate decreased [None]
  - Infusion related reaction [None]
  - Therapy cessation [None]

NARRATIVE: CASE EVENT DATE: 20200930
